FAERS Safety Report 23279209 (Version 1)
Quarter: 2023Q4

REPORT INFORMATION
  Report Type: Spontaneous
  Country: US (occurrence: US)
  Receive Date: 20231209
  Receipt Date: 20231209
  Transmission Date: 20240109
  Serious: Yes (Hospitalization, Other)
  Sender: FDA-Public Use
  Company Number: US-BAXTER-2023BAX037448

PATIENT
  Age: 42 Year
  Sex: Female

DRUGS (42)
  1. DOXORUBICIN [Suspect]
     Active Substance: DOXORUBICIN
     Indication: Anticoagulant therapy
     Dosage: UNK
     Route: 065
  2. ZINECARD [Suspect]
     Active Substance: DEXRAZOXANE HYDROCHLORIDE
     Indication: Anticoagulant therapy
     Dosage: UNK
     Route: 065
  3. TYLENOL [Suspect]
     Active Substance: ACETAMINOPHEN
     Indication: Pain in extremity
     Dosage: 500 MG
     Route: 048
  4. TYLENOL [Suspect]
     Active Substance: ACETAMINOPHEN
     Indication: Pain management
  5. BACLOFEN [Concomitant]
     Active Substance: BACLOFEN
     Indication: Pain
     Dosage: 15 MG
     Route: 048
  6. BACLOFEN [Concomitant]
     Active Substance: BACLOFEN
     Indication: Pain management
     Dosage: 10 MG
     Route: 048
  7. OLANZAPINE [Concomitant]
     Active Substance: OLANZAPINE
     Dosage: UNK
     Route: 065
  8. HYDROMORPHONE [Concomitant]
     Active Substance: HYDROMORPHONE
     Indication: Pain
     Dosage: UNK
     Route: 065
  9. HYDROMORPHONE [Concomitant]
     Active Substance: HYDROMORPHONE
     Indication: Pain management
  10. HYDROMORPHONE [Concomitant]
     Active Substance: HYDROMORPHONE
     Indication: Venous angioplasty
  11. HYDROMORPHONE [Concomitant]
     Active Substance: HYDROMORPHONE
     Indication: Swelling
  12. BUPIVACAINE [Concomitant]
     Active Substance: BUPIVACAINE
     Indication: Pain
     Dosage: UNK
     Route: 065
  13. BUPIVACAINE [Concomitant]
     Active Substance: BUPIVACAINE
     Indication: Pain management
     Dosage: 4 MG, ROUTE OF ADMINISTRATION: INTRATHECAL PUMP
     Route: 050
  14. BUPIVACAINE [Concomitant]
     Active Substance: BUPIVACAINE
     Indication: Venous angioplasty
     Dosage: DECREASED DOSES
     Route: 065
  15. BUPIVACAINE [Concomitant]
     Active Substance: BUPIVACAINE
     Indication: Swelling
  16. GABAPENTIN [Concomitant]
     Active Substance: GABAPENTIN
     Indication: Pain
     Dosage: 2400 MG
     Route: 048
  17. GABAPENTIN [Concomitant]
     Active Substance: GABAPENTIN
     Indication: Pain management
     Dosage: 1600 MG
     Route: 048
  18. GABAPENTIN [Concomitant]
     Active Substance: GABAPENTIN
     Dosage: 1800 MG
     Route: 048
  19. GABAPENTIN [Concomitant]
     Active Substance: GABAPENTIN
     Dosage: 1200 MG
     Route: 048
  20. GABAPENTIN [Concomitant]
     Active Substance: GABAPENTIN
     Dosage: DECREASED DOSES
     Route: 065
  21. METHADONE [Concomitant]
     Active Substance: METHADONE HYDROCHLORIDE
     Indication: Pain
     Dosage: 10 MG
     Route: 048
  22. METHADONE [Concomitant]
     Active Substance: METHADONE HYDROCHLORIDE
     Indication: Pain management
     Dosage: 20 MG
     Route: 048
  23. METHADONE [Concomitant]
     Active Substance: METHADONE HYDROCHLORIDE
     Dosage: 30 MG
     Route: 048
  24. METHADONE [Concomitant]
     Active Substance: METHADONE HYDROCHLORIDE
     Dosage: 40 MG
     Route: 048
  25. METHADONE [Concomitant]
     Active Substance: METHADONE HYDROCHLORIDE
     Dosage: 50 MG
     Route: 048
  26. MORPHINE [Concomitant]
     Active Substance: MORPHINE
     Indication: Pain
     Dosage: 492 M EQ
     Route: 048
  27. MORPHINE [Concomitant]
     Active Substance: MORPHINE
     Dosage: 530 MEQ
     Route: 048
  28. MORPHINE [Concomitant]
     Active Substance: MORPHINE
     Dosage: 380 MEQ,
     Route: 048
  29. MORPHINE [Concomitant]
     Active Substance: MORPHINE
     Dosage: 314 MEQ
     Route: 048
  30. MORPHINE [Concomitant]
     Active Substance: MORPHINE
     Dosage: 204 MEQ
     Route: 048
  31. MORPHINE [Concomitant]
     Active Substance: MORPHINE
     Dosage: 6 MEQ
     Route: 048
  32. MORPHINE [Concomitant]
     Active Substance: MORPHINE
     Dosage: 42 MEQ
     Route: 048
  33. MORPHINE [Concomitant]
     Active Substance: MORPHINE
     Dosage: 24 MEQ
     Route: 048
  34. MORPHINE [Concomitant]
     Active Substance: MORPHINE
     Dosage: TOTALING 13 MEQ
     Route: 037
  35. OXYCODONE [Concomitant]
     Active Substance: OXYCODONE
     Indication: Pain
     Dosage: UNK
     Route: 065
  36. OXYCODONE [Concomitant]
     Active Substance: OXYCODONE
     Indication: Pain management
  37. METHADONE [Concomitant]
     Active Substance: METHADONE HYDROCHLORIDE
     Indication: Pain
     Dosage: 20 MG
     Route: 042
  38. METHADONE [Concomitant]
     Active Substance: METHADONE HYDROCHLORIDE
     Indication: Pain management
  39. SERTRALINE [Concomitant]
     Active Substance: SERTRALINE HYDROCHLORIDE
     Indication: Pain
     Dosage: UNK
     Route: 065
  40. KETAMINE [Concomitant]
     Active Substance: KETAMINE
     Dosage: UNK
     Route: 065
  41. ACETAMINOPHEN [Concomitant]
     Active Substance: ACETAMINOPHEN
     Indication: Pain
     Dosage: UNK
     Route: 065
  42. ACETAMINOPHEN [Concomitant]
     Active Substance: ACETAMINOPHEN
     Indication: Pain management

REACTIONS (8)
  - Aspiration [Unknown]
  - Intestinal metastasis [Unknown]
  - Small intestinal obstruction [Unknown]
  - Pain in extremity [Unknown]
  - Drug ineffective [Unknown]
  - Lethargy [Unknown]
  - Swelling [Unknown]
  - Pain [Unknown]
